FAERS Safety Report 8161987-7 (Version None)
Quarter: 2012Q1

REPORT INFORMATION
  Report Type: 
  Country: None (occurrence: None)
  Receive Date: 20120221
  Receipt Date: 20120106
  Transmission Date: 20120608
  Serious: Yes (Hospitalization, Other)
  Sender: FDA-Public Use
  Company Number: A-12-003

PATIENT
  Age: 86 Year
  Sex: Male
  Weight: 58.9676 kg

DRUGS (3)
  1. ALBUTEROL SULATE [Suspect]
     Indication: BRONCHOSPASM
     Dosage: 054
     Dates: start: 20100101
  2. SAW PALMETTO SUPPLEMENT [Concomitant]
  3. AGGRENOX [Concomitant]

REACTIONS (2)
  - TRANSIENT ISCHAEMIC ATTACK [None]
  - CEREBROVASCULAR ACCIDENT [None]
